FAERS Safety Report 26085924 (Version 1)
Quarter: 2025Q4

REPORT INFORMATION
  Report Type: Spontaneous
  Country: PK (occurrence: PK)
  Receive Date: 20251125
  Receipt Date: 20251125
  Transmission Date: 20260118
  Serious: No
  Sender: ALKEM
  Company Number: PK-ALKEM LABORATORIES LIMITED-PK-ALKEM-2025-10297

PATIENT
  Sex: Female

DRUGS (2)
  1. METFORMIN HYDROCHLORIDE [Suspect]
     Active Substance: METFORMIN HYDROCHLORIDE
     Indication: Polycystic ovarian syndrome
     Dosage: 1 MILLIGRAM, BID (2 G/DAY)
     Route: 065
  2. DIETARY SUPPLEMENT\RESVERATROL [Suspect]
     Active Substance: DIETARY SUPPLEMENT\RESVERATROL
     Indication: Polycystic ovarian syndrome
     Dosage: 2 GRAM, QD
     Route: 065

REACTIONS (1)
  - Adverse event [Unknown]
